FAERS Safety Report 10388940 (Version 1)
Quarter: 2014Q1

REPORT INFORMATION
  Report Type: Spontaneous
  Country: US (occurrence: None)
  Receive Date: 20140306
  Receipt Date: 20140306
  Transmission Date: 20141002
  Serious: Yes (Other)
  Sender: FDA-Public Use
  Company Number: 163-21880-13115239

PATIENT
  Age: 74 Year
  Sex: Male
  Weight: 84 kg

DRUGS (1)
  1. REVLIMID [Suspect]
     Indication: MYELODYSPLASTIC SYNDROME
     Dosage: 28 IN 28 DAYS.
     Route: 048
     Dates: start: 20131014, end: 20131110

REACTIONS (1)
  - Pancytopenia [None]
